FAERS Safety Report 7643803-2 (Version None)
Quarter: 2011Q3

REPORT INFORMATION
  Report Type: 
  Country: None (occurrence: None)
  Receive Date: 20110729
  Receipt Date: 20110727
  Transmission Date: 20111222
  Serious: Yes (Hospitalization)
  Sender: FDA-Public Use
  Company Number: FR-SHIRE-SPV1-2011-00440

PATIENT
  Sex: Male

DRUGS (9)
  1. ANAGRELIDE HYDROCHLORIDE [Suspect]
     Dosage: 0.5 MG, 6 CAPS/1X/DAY:QD
     Route: 048
     Dates: start: 20110211, end: 20110221
  2. ANAGRELIDE HYDROCHLORIDE [Suspect]
     Dosage: 0.5 MG, 4 CAPS/1X/DAY:QD
     Route: 048
     Dates: start: 20110222
  3. ZOLPIDEM [Concomitant]
     Indication: PRODUCT USED FOR UNKNOWN INDICATION
     Dosage: 10 MG, 1X/DAY:QD
     Route: 048
  4. ANAGRELIDE HYDROCHLORIDE [Suspect]
     Indication: THROMBOCYTOSIS
     Dosage: 0.5 MG,UNK CAPS/ DAY
     Route: 048
     Dates: start: 20100701, end: 20110123
  5. ATORVASTATIN CALCIUM [Concomitant]
     Indication: PRODUCT USED FOR UNKNOWN INDICATION
     Dosage: 10 MG, 1X/DAY:QD
     Route: 048
  6. PLAVIX [Concomitant]
     Indication: PRODUCT USED FOR UNKNOWN INDICATION
     Dosage: 75 MG, 1X/DAY:QD
     Route: 048
  7. ANAGRELIDE HYDROCHLORIDE [Suspect]
     Dosage: 0.5 MG, 5 CAPS/1X/DAY:QD
     Route: 048
     Dates: start: 20110208, end: 20110210
  8. ANAGRELIDE HYDROCHLORIDE [Suspect]
     Dosage: 0.5 MG, 6 CAPS/1X/DAY:QD
     Route: 048
     Dates: start: 20110124, end: 20110207
  9. COVERSYL                           /00790702/ [Concomitant]
     Indication: PRODUCT USED FOR UNKNOWN INDICATION
     Dosage: 5 MG, 1X/DAY:QD
     Route: 048

REACTIONS (3)
  - HYPERTENSION [None]
  - HEADACHE [None]
  - INTRACRANIAL PRESSURE INCREASED [None]
